FAERS Safety Report 8387514 (Version 3)
Quarter: 2013Q1

REPORT INFORMATION
  Report Type: Report from Study
  Country: US (occurrence: US)
  Receive Date: 20120202
  Receipt Date: 20130102
  Transmission Date: 20140127
  Serious: Yes (Hospitalization)
  Sender: FDA-Public Use
  Company Number: US-ROCHE-1034071

PATIENT
  Age: 74 Year
  Sex: Female
  Weight: 42.4 kg

DRUGS (5)
  1. BEVACIZUMAB [Suspect]
     Indication: FALLOPIAN TUBE CANCER
     Dosage: OVER 30-90MINS ON DAY 1, BEGINNING WITH CYCLE 2, TOTAL DOSE ADMINISTERED 670 MG, LAST DOSE DATE: 29
     Route: 042
     Dates: start: 20110907
  2. CISPLATIN [Suspect]
     Indication: FALLOPIAN TUBE CANCER
     Dosage: ON DAY 2, TOTAL DOSE ADMINISTERED 100 MG,LAST DOSE DATE: 30 NOV 2011 (DOSE ADMINISTERED THIS COURSE
     Route: 033
     Dates: start: 20110907
  3. PACLITAXEL [Suspect]
     Indication: FALLOPIAN TUBE CANCER
     Dosage: OVER 3 HOURS ON DAY 1,TOTAL DOSE ADMINISTERED 0 MG, LAST DOSE DATE: 15 NOV 2011
     Route: 042
     Dates: start: 20110907
  4. PACLITAXEL [Suspect]
     Dosage: ON DAY 8
     Route: 033
     Dates: start: 20110907
  5. DOCETAXEL [Suspect]
     Indication: FALLOPIAN TUBE CANCER
     Dosage: REPORTED AS TAXOTERE. SUBSTITUTED FOR PACLITAXEL (TAXOL) AFTER REACTION DURING CYCLE 1 DAY 1
     Route: 065

REACTIONS (12)
  - Hypertension [Recovered/Resolved with Sequelae]
  - Anxiety [Recovered/Resolved with Sequelae]
  - Confusional state [Recovered/Resolved with Sequelae]
  - Failure to thrive [Recovered/Resolved with Sequelae]
  - Aspiration [Not Recovered/Not Resolved]
  - Hypoxia [Not Recovered/Not Resolved]
  - Decreased appetite [Not Recovered/Not Resolved]
  - Dehydration [Not Recovered/Not Resolved]
  - Hypokalaemia [Not Recovered/Not Resolved]
  - Diarrhoea [Not Recovered/Not Resolved]
  - Vomiting [Not Recovered/Not Resolved]
  - Febrile neutropenia [Not Recovered/Not Resolved]
